FAERS Safety Report 6942924-7 (Version None)
Quarter: 2010Q3

REPORT INFORMATION
  Report Type: 
  Country: None (occurrence: None)
  Receive Date: 20100826
  Receipt Date: 20100811
  Transmission Date: 20110219
  Serious: Yes (Other)
  Sender: FDA-Public Use
  Company Number: PHHY2010US53015

PATIENT
  Age: 11 Year
  Sex: Male

DRUGS (5)
  1. RITALIN LA [Suspect]
     Indication: ATTENTION DEFICIT/HYPERACTIVITY DISORDER
     Dosage: 40 MG PER DAY
  2. CONCERTA [Suspect]
     Indication: ATTENTION DEFICIT/HYPERACTIVITY DISORDER
     Dosage: 72 MG PER DAY
  3. FOCALIN [Suspect]
     Indication: ATTENTION DEFICIT/HYPERACTIVITY DISORDER
     Dosage: 5 MG PER DAY
  4. FOCALIN [Suspect]
     Dosage: 10 MG IN THE AFTERNOON TOGETHER WITH FOCALIN XR 20 MG IN THE MORNING
  5. FOCALIN XR [Suspect]
     Indication: ATTENTION DEFICIT/HYPERACTIVITY DISORDER
     Dosage: 20 MG IN THE MORNING TOGETHER WITH FOCALIN 10 MG IN THE MORNING

REACTIONS (9)
  - ANTINUCLEAR ANTIBODY POSITIVE [None]
  - BLOOD FOLATE INCREASED [None]
  - CLUBBING [None]
  - DRY SKIN [None]
  - EXCORIATION [None]
  - FOOT DEFORMITY [None]
  - PARAESTHESIA [None]
  - RAYNAUD'S PHENOMENON [None]
  - SKIN DISCOLOURATION [None]
